FAERS Safety Report 18429085 (Version 1)
Quarter: 2020Q4

REPORT INFORMATION
  Report Type: Spontaneous
  Country: BR (occurrence: BR)
  Receive Date: 20201027
  Receipt Date: 20201027
  Transmission Date: 20210114
  Serious: Yes (Hospitalization, Other)
  Sender: FDA-Public Use
  Company Number: BR-ABBVIE-20P-020-3623866-00

PATIENT
  Age: 59 Year
  Sex: Female

DRUGS (11)
  1. GARDENAL [Suspect]
     Active Substance: PHENOBARBITAL
     Dosage: LIQUID
     Route: 048
  2. DEPAKENE [Suspect]
     Active Substance: VALPROIC ACID
     Indication: EPILEPSY
     Dosage: CHANGED TO DEPAKENE 500MG. DID NOT REMEMBER DOSE, SAID IT WAS 1500MG OR 2000MG
     Route: 048
  3. DEPAKOTE ER [Suspect]
     Active Substance: DIVALPROEX SODIUM
     Indication: PRODUCT USED FOR UNKNOWN INDICATION
     Dosage: INITIAL DOSE NOT SPECIFIED
     Route: 048
  4. RIVOTRIL [Suspect]
     Active Substance: CLONAZEPAM
     Dosage: DAILY DOSE: 20 DROP, 2 IN 1 DAY ADMINISTERED IN FEEDING TUBE; MORNING/NIGHT
     Route: 048
  5. CALCIUM [Suspect]
     Active Substance: CALCIUM
     Indication: PRODUCT USED FOR UNKNOWN INDICATION
     Route: 065
  6. DEPAKOTE ER [Suspect]
     Active Substance: DIVALPROEX SODIUM
     Dosage: 1TAB, 3 IN 1DAY. WITH THIS DOSE,PATIENT HAD RESULT; DOSE USED FOR AROUND 12 YEAR
     Route: 048
  7. DEPAKOTE ER [Suspect]
     Active Substance: DIVALPROEX SODIUM
     Dosage: DAILY DOSE: 2 TAB, 2 IN 1 DAY. USED FOR A WHILE; DOSE DECREASED
     Route: 048
  8. DEPAKOTE ER [Suspect]
     Active Substance: DIVALPROEX SODIUM
     Dosage: ADMINISTERED CRUSHED IN FEEDING TUBE; CHANGED TO DEPAKENE SYRUP
     Route: 048
  9. DEPAKENE [Suspect]
     Active Substance: VALPROIC ACID
     Indication: EPILEPSY
     Dosage: REPORTER DID NOT REMEMBER EXACT DOSE, SAID IT WAS 1500MG OR 2000MG
     Route: 048
  10. GARDENAL [Suspect]
     Active Substance: PHENOBARBITAL
     Indication: PRODUCT USED FOR UNKNOWN INDICATION
     Dosage: DOSE DECREASED DUE TO LIVER DISORDER;ADMINISTERED IN MORNING, SWITCHED TO LIQUID
     Route: 048
  11. RIVOTRIL [Suspect]
     Active Substance: CLONAZEPAM
     Indication: SEIZURE
     Dosage: ADMINISTERED AT NIGHT; CHANGED TO LIQUID FORM WHEN FEEDING TUBE WAS PLACED
     Route: 048

REACTIONS (16)
  - Product physical issue [Unknown]
  - Incorrect route of product administration [Unknown]
  - Liver disorder [Unknown]
  - Seizure [Unknown]
  - Drug ineffective [Unknown]
  - Pneumonia aspiration [Unknown]
  - Pulmonary mass [Unknown]
  - Inappropriate schedule of product administration [Unknown]
  - Pyrexia [Unknown]
  - Enteral nutrition [Unknown]
  - Gamma-glutamyltransferase increased [Unknown]
  - Gait disturbance [Not Recovered/Not Resolved]
  - Influenza [Unknown]
  - Aspiration [Unknown]
  - Mobility decreased [Not Recovered/Not Resolved]
  - Choking [Unknown]

NARRATIVE: CASE EVENT DATE: 2005
